FAERS Safety Report 24198857 (Version 1)
Quarter: 2024Q3

REPORT INFORMATION
  Report Type: Spontaneous
  Country: GB (occurrence: GB)
  Receive Date: 20240812
  Receipt Date: 20240812
  Transmission Date: 20241016
  Serious: Yes (Other)
  Sender: MSN LABORATORIES
  Company Number: GB-MHRA-31372200

PATIENT

DRUGS (2)
  1. ATORVASTATIN [Suspect]
     Active Substance: ATORVASTATIN
     Indication: Product used for unknown indication
     Route: 065
  2. ATORVASTATIN [Suspect]
     Active Substance: ATORVASTATIN
     Route: 065
     Dates: start: 202407

REACTIONS (3)
  - Erectile dysfunction [Unknown]
  - Muscular weakness [Unknown]
  - Purpura [Unknown]
